FAERS Safety Report 10216853 (Version 1)
Quarter: 2014Q2

REPORT INFORMATION
  Report Type: Spontaneous
  Country: DE (occurrence: DE)
  Receive Date: 20140604
  Receipt Date: 20140604
  Transmission Date: 20141212
  Serious: Yes (Other)
  Sender: FDA-Public Use
  Company Number: DE-WATSON-2014-11507

PATIENT
  Age: 1 Day
  Sex: Male
  Weight: 2 kg

DRUGS (5)
  1. SERTRALINE (UNKNOWN) [Suspect]
     Indication: BIPOLAR DISORDER
     Dosage: 50 MG, DAILY
     Route: 064
     Dates: start: 20130304, end: 20130810
  2. SEROQUEL [Suspect]
     Indication: BIPOLAR DISORDER
     Dosage: 150 MG, DAILY
     Route: 064
     Dates: start: 20121213
  3. SEROQUEL [Suspect]
     Dosage: 50 MG, DAILY
     Route: 064
     Dates: end: 20130810
  4. FOLIC ACID [Concomitant]
     Indication: PROPHYLAXIS OF NEURAL TUBE DEFECT
     Dosage: 0.8 MG, DAILY
     Route: 064
     Dates: start: 20130115
  5. FOLIC ACID [Concomitant]
     Dosage: 0.4 MG, DAILY
     Route: 064

REACTIONS (4)
  - Renal vein thrombosis [Not Recovered/Not Resolved]
  - Vena cava thrombosis [Not Recovered/Not Resolved]
  - Foetal exposure during pregnancy [Unknown]
  - Foetal death [Not Recovered/Not Resolved]
